FAERS Safety Report 6359007-X (Version None)
Quarter: 2009Q3

REPORT INFORMATION
  Report Type: 
  Country: None (occurrence: None)
  Receive Date: 20090916
  Receipt Date: 20090909
  Transmission Date: 20100115
  Serious: Yes (Hospitalization)
  Sender: FDA-Public Use
  Company Number: US-JNJCH-2009024362

PATIENT
  Age: 8 Year
  Sex: Female
  Weight: 24.9 kg

DRUGS (1)
  1. CHILDREN'S ZYRTEC ALLERGY SYRUP [Suspect]
     Indication: URTICARIA
     Dosage: TEXT:5 ML OR 10ML PER DAY
     Route: 048

REACTIONS (7)
  - ABDOMINAL PAIN [None]
  - CONSTIPATION [None]
  - NAUSEA [None]
  - URINE ABNORMALITY [None]
  - URINE COLOUR ABNORMAL [None]
  - VOMITING [None]
  - WEIGHT DECREASED [None]
